FAERS Safety Report 4477818-2 (Version None)
Quarter: 2004Q4

REPORT INFORMATION
  Report Type: 
  Country: None (occurrence: None)
  Receive Date: 20041014
  Receipt Date: 20040928
  Transmission Date: 20050328
  Serious: Yes (Other)
  Sender: FDA-Public Use
  Company Number: 2004-DE-05004GD

PATIENT
  Age: 41 Year
  Sex: Female

DRUGS (1)
  1. PRAMIPEXOLE (PRAMIPEXOLE DIHYDROCHLORIDE) (NR) (PRAMIPEXOLE) [Suspect]
     Indication: PARKINSON'S DISEASE
     Dosage: 4.5 MG (NR) (NR)

REACTIONS (6)
  - CAESAREAN SECTION [None]
  - DISEASE PROGRESSION [None]
  - DRUG EXPOSURE DURING PREGNANCY [None]
  - PARKINSON'S DISEASE [None]
  - PREGNANCY [None]
  - TREATMENT NONCOMPLIANCE [None]
